FAERS Safety Report 5148973-6 (Version None)
Quarter: 2006Q4

REPORT INFORMATION
  Report Type: 
  Country: None (occurrence: None)
  Receive Date: 20061108
  Receipt Date: 20061024
  Transmission Date: 20070319
  Serious: Yes (Hospitalization)
  Sender: FDA-Public Use
  Company Number: 2006PV023811

PATIENT
  Age: 76 Year
  Sex: Female
  Weight: 77.1115 kg

DRUGS (5)
  1. BYETTA [Suspect]
     Indication: DIABETES MELLITUS NON-INSULIN-DEPENDENT
     Dosage: 10 MCG;BID;SC; 5 MCG;BID;SC
     Route: 058
     Dates: start: 20060401, end: 20060101
  2. BYETTA [Suspect]
     Indication: DIABETES MELLITUS NON-INSULIN-DEPENDENT
     Dosage: 10 MCG;BID;SC; 5 MCG;BID;SC
     Route: 058
     Dates: start: 20060101
  3. COUMADIN [Concomitant]
  4. VITAMIN K [Concomitant]
  5. LANTUS [Concomitant]

REACTIONS (4)
  - BACK PAIN [None]
  - DYSPEPSIA [None]
  - ERUCTATION [None]
  - INFECTIVE THROMBOSIS [None]
